FAERS Safety Report 22609997 (Version 1)
Quarter: 2023Q2

REPORT INFORMATION
  Report Type: Spontaneous
  Country: US (occurrence: US)
  Receive Date: 20230616
  Receipt Date: 20230616
  Transmission Date: 20230721
  Serious: Yes (Other)
  Sender: FDA-Public Use
  Company Number: US-PFIZER INC-PV202300105801

PATIENT
  Age: 64 Year
  Sex: Female
  Weight: 41.3 kg

DRUGS (14)
  1. RETACRIT [Suspect]
     Active Substance: EPOETIN ALFA-EPBX
     Indication: Colon cancer
     Dosage: 40000 IU, WEEKLY (4 WEEKS)
     Route: 058
  2. RETACRIT [Suspect]
     Active Substance: EPOETIN ALFA-EPBX
     Indication: Exposure to toxic agent
  3. RETACRIT [Suspect]
     Active Substance: EPOETIN ALFA-EPBX
     Indication: Idiopathic pulmonary fibrosis
  4. RETACRIT [Suspect]
     Active Substance: EPOETIN ALFA-EPBX
     Indication: COVID-19
  5. RETACRIT [Suspect]
     Active Substance: EPOETIN ALFA-EPBX
     Indication: Nausea
  6. RETACRIT [Suspect]
     Active Substance: EPOETIN ALFA-EPBX
     Indication: Vomiting
  7. RETACRIT [Suspect]
     Active Substance: EPOETIN ALFA-EPBX
     Indication: Colon cancer
  8. RETACRIT [Suspect]
     Active Substance: EPOETIN ALFA-EPBX
     Indication: Anaemia
  9. RETACRIT [Suspect]
     Active Substance: EPOETIN ALFA-EPBX
     Indication: Dehydration
  10. RETACRIT [Suspect]
     Active Substance: EPOETIN ALFA-EPBX
     Indication: Angina pectoris
  11. RETACRIT [Suspect]
     Active Substance: EPOETIN ALFA-EPBX
     Indication: Pain
  12. RETACRIT [Suspect]
     Active Substance: EPOETIN ALFA-EPBX
     Indication: Nasopharyngitis
  13. RETACRIT [Suspect]
     Active Substance: EPOETIN ALFA-EPBX
     Indication: Pyrexia
  14. RETACRIT [Suspect]
     Active Substance: EPOETIN ALFA-EPBX
     Indication: Agranulocytosis

REACTIONS (13)
  - Serum ferritin increased [Unknown]
  - White blood cell count increased [Unknown]
  - Red blood cell count decreased [Unknown]
  - Haemoglobin decreased [Unknown]
  - Haematocrit decreased [Unknown]
  - Platelet count decreased [Unknown]
  - Mean platelet volume decreased [Unknown]
  - Red cell distribution width increased [Unknown]
  - Neutrophil count increased [Unknown]
  - Lymphocyte count decreased [Unknown]
  - Blood iron increased [Unknown]
  - Iron binding capacity unsaturated increased [Unknown]
  - Transferrin saturation increased [Unknown]
